FAERS Safety Report 17789071 (Version 3)
Quarter: 2020Q3

REPORT INFORMATION
  Report Type: Spontaneous
  Country: JP (occurrence: JP)
  Receive Date: 20200514
  Receipt Date: 20200715
  Transmission Date: 20201102
  Serious: Yes (Hospitalization, Other)
  Sender: FDA-Public Use
  Company Number: JP-009507513-2005JPN000444J

PATIENT
  Age: 42 Year
  Sex: Male
  Weight: 65 kg

DRUGS (14)
  1. KEYTRUDA [Suspect]
     Active Substance: PEMBROLIZUMAB
     Indication: RECTAL CANCER
     Dosage: 200 MILLIGRAM, Q3W
     Route: 041
     Dates: start: 20200501, end: 20200501
  2. SODIUM FERROUS CITRATE [Concomitant]
     Active Substance: SODIUM FERROUS CITRATE
     Dosage: UNK
     Route: 065
  3. MS CONTIN [Suspect]
     Active Substance: MORPHINE SULFATE
     Indication: CANCER PAIN
     Dosage: 840 MILLIGRAM, BID
     Route: 048
     Dates: start: 20200425
  4. METHYCOBAL [Concomitant]
     Active Substance: METHYLCOBALAMIN
     Indication: NEURALGIA
     Dosage: 500 MILLIGRAM, TID
     Route: 048
     Dates: start: 20191008
  5. LYRICA [Concomitant]
     Active Substance: PREGABALIN
     Indication: NEURALGIA
     Dosage: 75 MILLIGRAM, BID
     Route: 048
     Dates: start: 20190422
  6. CALONAL [Concomitant]
     Active Substance: ACETAMINOPHEN
     Indication: NEURALGIA
     Dosage: 1000 MILLIGRAM, QID
     Route: 048
     Dates: start: 20190521
  7. TRYPTANOL [Suspect]
     Active Substance: AMITRIPTYLINE
     Indication: NEURALGIA
     Dosage: 10 MILLIGRAM, QD
     Route: 048
     Dates: start: 20200430
  8. MAGMITT [Suspect]
     Active Substance: MAGNESIUM OXIDE
     Indication: CONSTIPATION
     Dosage: 660 MILLIGRAM, TID
     Route: 048
     Dates: start: 20200425
  9. WARFARIN [Concomitant]
     Active Substance: WARFARIN
     Indication: PULMONARY EMBOLISM
     Dosage: 1.5 MILLIGRAM, QD
     Route: 048
     Dates: start: 20200409
  10. TEGRETOL [Concomitant]
     Active Substance: CARBAMAZEPINE
     Indication: NEURALGIA
     Dosage: 100 MILLIGRAM, BID
     Route: 048
     Dates: start: 20191008, end: 20200430
  11. RIVOTRIL [Suspect]
     Active Substance: CLONAZEPAM
     Indication: NEURALGIA
     Dosage: 1 MILLIGRAM, QD
     Route: 048
     Dates: start: 20200421
  12. MORPHINE HYDROCHLORIDE HYDRATE [Suspect]
     Active Substance: MORPHINE HYDROCHLORIDE
     Indication: CANCER PAIN
     Dosage: UNK,WHEN IN PAIN
     Route: 048
     Dates: start: 20200425
  13. SYMPROIC [Suspect]
     Active Substance: NALDEMEDINE
     Indication: CONSTIPATION
     Dosage: 0.2 MILLIGRAM, QD
     Route: 048
     Dates: start: 20200425
  14. NAIXAN [Concomitant]
     Active Substance: NAPROXEN SODIUM
     Indication: TUMOUR ASSOCIATED FEVER
     Dosage: 100 MILLIGRAM, TID
     Route: 048
     Dates: start: 20200408

REACTIONS (2)
  - Decreased appetite [Recovered/Resolved]
  - Hepatic function abnormal [Recovered/Resolved]

NARRATIVE: CASE EVENT DATE: 20200503
